FAERS Safety Report 24792712 (Version 1)
Quarter: 2024Q4

REPORT INFORMATION
  Report Type: Other
  Country: FI (occurrence: FI)
  Receive Date: 20241231
  Receipt Date: 20241231
  Transmission Date: 20250114
  Serious: Yes (Hospitalization, Other)
  Sender: ASPEN
  Company Number: FI-BAXTER-2024BAX029001

PATIENT

DRUGS (22)
  1. DEXAMETHASONE [Suspect]
     Active Substance: DEXAMETHASONE
     Indication: Plasma cell myeloma
     Dosage: 20 MG, ONCE DAILY (QD)
     Route: 048
     Dates: start: 20241108, end: 20241111
  2. DOXORUBICIN [Suspect]
     Active Substance: DOXORUBICIN
     Indication: Plasma cell myeloma
     Dosage: 16.4 MG, QD, (SOLUTION)
     Route: 042
     Dates: start: 20241108, end: 20241111
  3. CYCLOPHOSPHAMIDE [Suspect]
     Active Substance: CYCLOPHOSPHAMIDE
     Indication: Plasma cell myeloma
     Dosage: 660 MG, QD, (SOLUTION)
     Route: 042
     Dates: start: 20241108, end: 20241111
  4. ELRANATAMAB [Suspect]
     Active Substance: ELRANATAMAB
     Indication: Plasma cell myeloma
     Dosage: 76 MG, WEEKLY
     Route: 058
     Dates: start: 20240925, end: 20241030
  5. CISPLATIN [Suspect]
     Active Substance: CISPLATIN
     Indication: Plasma cell myeloma
     Dosage: 16 MG, QD
     Route: 042
     Dates: start: 20241108, end: 20241111
  6. ETOPOSIDE [Suspect]
     Active Substance: ETOPOSIDE
     Indication: Plasma cell myeloma
     Dosage: 68 MG, QD
     Route: 042
     Dates: start: 20241108, end: 20241111
  7. POTASSIUM CHLORIDE [Concomitant]
     Active Substance: POTASSIUM CHLORIDE
     Indication: Prophylaxis
     Dosage: UNK, ONGOING
     Route: 065
     Dates: start: 20241108
  8. ACYCLOVIR [Concomitant]
     Active Substance: ACYCLOVIR
     Indication: Prophylaxis
     Dosage: UNK, ONGOING
     Route: 048
     Dates: start: 20230126
  9. AMLODIPINE [Concomitant]
     Active Substance: AMLODIPINE BESYLATE
     Indication: Essential hypertension
     Dosage: UNK, ONGOING
     Route: 065
     Dates: start: 20240924
  10. ATORVASTATIN [Concomitant]
     Active Substance: ATORVASTATIN
     Indication: Hypercholesterolaemia
     Dosage: UNK, ONGOING
     Route: 065
     Dates: start: 20181122
  11. BISOPROLOL [Concomitant]
     Active Substance: BISOPROLOL
     Indication: Tachycardia
     Dosage: UNK, ONGOING
     Route: 065
     Dates: start: 20241112
  12. ENOXAPARIN [Concomitant]
     Active Substance: ENOXAPARIN
     Indication: Thrombosis prophylaxis
     Dosage: UNK
     Route: 058
     Dates: start: 20241112, end: 20241115
  13. ESTRADIOL [Concomitant]
     Active Substance: ESTRADIOL
     Indication: Menopause
     Dosage: UNK, ONGOING
     Route: 067
     Dates: start: 20200219
  14. FUROSEMIDE [Concomitant]
     Active Substance: FUROSEMIDE
     Indication: Oedema
     Dosage: UNK, ONGOING
     Route: 048
     Dates: start: 20241113
  15. CALCIUM\CHOLECALCIFEROL [Concomitant]
     Active Substance: CALCIUM\CHOLECALCIFEROL
     Indication: Prophylaxis
     Dosage: UNK, ONGOING
     Route: 065
     Dates: start: 20210505
  16. SULFAMETHOXAZOLE\TRIMETHOPRIM [Concomitant]
     Active Substance: SULFAMETHOXAZOLE\TRIMETHOPRIM
     Indication: Antifungal prophylaxis
     Dosage: UNK, ONGOING
     Route: 048
     Dates: start: 20240226
  17. OXYCODONE [Concomitant]
     Active Substance: OXYCODONE
     Indication: Tumour pain
     Dosage: UNK, ONGOING
     Route: 048
     Dates: start: 20241108
  18. OXYCODONE [Concomitant]
     Active Substance: OXYCODONE
     Dosage: UNK
     Route: 048
     Dates: start: 20241021
  19. ONDANSETRON [Concomitant]
     Active Substance: ONDANSETRON
     Indication: Prophylaxis of nausea and vomiting
     Dosage: UNK, ONGOING
     Route: 048
     Dates: start: 20240226
  20. PANTOPRAZOLE [Concomitant]
     Active Substance: PANTOPRAZOLE
     Indication: Gastrooesophageal reflux prophylaxis
     Dosage: UNK, ONGOING
     Route: 048
     Dates: start: 20240226
  21. ACETAMINOPHEN [Concomitant]
     Active Substance: ACETAMINOPHEN
     Indication: Tumour pain
     Dosage: UNK, ONGOING
     Route: 048
     Dates: start: 20240701
  22. PREGABALIN [Concomitant]
     Active Substance: PREGABALIN
     Indication: Tumour pain
     Dosage: UNK, ONGOING
     Route: 048
     Dates: start: 20241111

REACTIONS (2)
  - Febrile neutropenia [Recovered/Resolved]
  - Pyrexia [Recovered/Resolved]

NARRATIVE: CASE EVENT DATE: 20241114
